FAERS Safety Report 16417167 (Version 3)
Quarter: 2022Q4

REPORT INFORMATION
  Report Type: Report from Study
  Country: MX (occurrence: MX)
  Receive Date: 20190611
  Receipt Date: 20221022
  Transmission Date: 20230112
  Serious: Yes (Life-Threatening)
  Sender: FDA-Public Use
  Company Number: PHHY2019MX134046

PATIENT
  Sex: Female
  Weight: 59 kg

DRUGS (6)
  1. EXFORGE [Suspect]
     Active Substance: AMLODIPINE BESYLATE\VALSARTAN
     Indication: Hypertension
     Dosage: 0.5 DOSAGE FORM, BID
     Route: 048
     Dates: start: 2017
  2. EXFORGE [Suspect]
     Active Substance: AMLODIPINE BESYLATE\VALSARTAN
     Indication: Hypertensive crisis
     Dosage: 0.5 DOSAGE FORM (AMLODIPINE 5 MG VALSARTAN 320 MG), Q12H
     Route: 048
     Dates: start: 201808
  3. EXFORGE [Suspect]
     Active Substance: AMLODIPINE BESYLATE\VALSARTAN
     Dosage: 2 DOSAGE FORM (AMLODIPINE 5 MG VALSARTAN 160 MG), QD
     Route: 048
  4. EXFORGE [Suspect]
     Active Substance: AMLODIPINE BESYLATE\VALSARTAN
     Dosage: 1 DOSAGE FORM, IN THE MORNING AND AT  NIGHT
     Route: 048
  5. METFORMIN [Concomitant]
     Active Substance: METFORMIN HYDROCHLORIDE
     Indication: Blood glucose increased
     Dosage: 0.5 DOSAGE FORM, QD
     Route: 048
     Dates: start: 201901
  6. DIETARY SUPPLEMENT\HERBALS\MILK THISTLE [Concomitant]
     Active Substance: DIETARY SUPPLEMENT\HERBALS\MILK THISTLE
     Indication: Liver disorder
     Dosage: 2 DOSAGE FORM, BID (ONE IN THE MORNING AND ONE AT NIGHT)
     Route: 048

REACTIONS (8)
  - Hypertensive crisis [Recovered/Resolved]
  - Hypertensive crisis [Unknown]
  - Renal disorder [Unknown]
  - Weight decreased [Unknown]
  - Polyuria [Not Recovered/Not Resolved]
  - Wrong technique in product usage process [Not Recovered/Not Resolved]
  - Inappropriate schedule of product administration [Unknown]
  - Product dispensing error [Unknown]

NARRATIVE: CASE EVENT DATE: 20170101
